FAERS Safety Report 8209756-3 (Version None)
Quarter: 2012Q1

REPORT INFORMATION
  Report Type: 
  Country: None (occurrence: None)
  Receive Date: 20120314
  Receipt Date: 20120301
  Transmission Date: 20120608
  Serious: Yes (Hospitalization)
  Sender: FDA-Public Use
  Company Number: US-ELI_LILLY_AND_COMPANY-US201203000646

PATIENT
  Age: 57 Year
  Sex: Female

DRUGS (1)
  1. CYMBALTA [Suspect]
     Dosage: 240 MG, UNKNOWN

REACTIONS (7)
  - DYSKINESIA [None]
  - AMNESIA [None]
  - OVERDOSE [None]
  - TACHYCARDIA [None]
  - HYPOTENSION [None]
  - DELUSION [None]
  - HALLUCINATION [None]
